FAERS Safety Report 21126777 (Version 1)
Quarter: 2022Q3

REPORT INFORMATION
  Report Type: Spontaneous
  Country: HU (occurrence: HU)
  Receive Date: 20220725
  Receipt Date: 20220725
  Transmission Date: 20221027
  Serious: Yes (Other)
  Sender: FDA-Public Use
  Company Number: HU-ALKEM LABORATORIES LIMITED-HU-ALKEM-2022-06342

PATIENT

DRUGS (1)
  1. LACOSAMIDE [Suspect]
     Active Substance: LACOSAMIDE
     Indication: Partial seizures
     Dosage: 400 MILLIGRAM, OD
     Route: 048

REACTIONS (1)
  - Generalised tonic-clonic seizure [Unknown]
